FAERS Safety Report 15266931 (Version 1)
Quarter: 2018Q3

REPORT INFORMATION
  Report Type: Spontaneous
  Country: US (occurrence: US)
  Receive Date: 20180810
  Receipt Date: 20180810
  Transmission Date: 20181010
  Serious: No
  Sender: FDA-Public Use
  Company Number: US-BAUSCH-BL-2018-020826

PATIENT
  Sex: Male

DRUGS (2)
  1. MORPHINE [Concomitant]
     Active Substance: MORPHINE
     Indication: PRODUCT USED FOR UNKNOWN INDICATION
  2. RELISTOR [Suspect]
     Active Substance: METHYLNALTREXONE BROMIDE
     Indication: CONSTIPATION
     Dosage: ONCE DAILY IN THE MORNING
     Route: 048
     Dates: start: 20180727, end: 20180801

REACTIONS (5)
  - Nervousness [Recovering/Resolving]
  - Discomfort [Recovering/Resolving]
  - Balance disorder [Recovering/Resolving]
  - Thinking abnormal [Recovering/Resolving]
  - Tension [Recovering/Resolving]

NARRATIVE: CASE EVENT DATE: 20180731
